FAERS Safety Report 10704552 (Version 1)
Quarter: 2015Q1

REPORT INFORMATION
  Report Type: Spontaneous
  Country: CR (occurrence: CR)
  Receive Date: 20150112
  Receipt Date: 20150112
  Transmission Date: 20150721
  Serious: Yes (Other)
  Sender: FDA-Public Use
  Company Number: CR-UCBSA-2015000892

PATIENT
  Sex: Female

DRUGS (1)
  1. XUZAL [Suspect]
     Active Substance: LEVOCETIRIZINE
     Indication: PRODUCT USED FOR UNKNOWN INDICATION
     Dosage: 5 MG AT UNKNOWN FREQUENCY

REACTIONS (2)
  - Gait disturbance [Unknown]
  - Somnolence [Unknown]
